FAERS Safety Report 7914741-2 (Version None)
Quarter: 2011Q4

REPORT INFORMATION
  Report Type: 
  Country: None (occurrence: None)
  Receive Date: 20111115
  Receipt Date: 20111103
  Transmission Date: 20120403
  Serious: Yes (Hospitalization, Other)
  Sender: FDA-Public Use
  Company Number: PHHY2011US097894

PATIENT
  Age: 41 Year
  Sex: Female

DRUGS (1)
  1. VERAPAMIL [Suspect]
     Dosage: 240 MG (19.2 G)

REACTIONS (29)
  - SINUS BRADYCARDIA [None]
  - METABOLIC ACIDOSIS [None]
  - INTENTIONAL OVERDOSE [None]
  - BLOOD CALCIUM INCREASED [None]
  - LEFT VENTRICULAR HYPERTROPHY [None]
  - HYPOXIA [None]
  - ATRIOVENTRICULAR BLOCK COMPLETE [None]
  - FLUID OVERLOAD [None]
  - LEUKOCYTOSIS [None]
  - TACHYCARDIA [None]
  - OXYGEN SATURATION DECREASED [None]
  - QRS AXIS ABNORMAL [None]
  - VENTRICULAR EXTRASYSTOLES [None]
  - RENAL FAILURE [None]
  - COLITIS ISCHAEMIC [None]
  - PYREXIA [None]
  - HAEMATOCRIT INCREASED [None]
  - BLOOD PRESSURE SYSTOLIC DECREASED [None]
  - ELECTROCARDIOGRAM T WAVE INVERSION [None]
  - ARTERIAL THROMBOSIS [None]
  - STAPHYLOCOCCUS TEST POSITIVE [None]
  - PNEUMATOSIS INTESTINALIS [None]
  - SUICIDE ATTEMPT [None]
  - LETHARGY [None]
  - CENTRAL VENOUS PRESSURE INCREASED [None]
  - GENERAL PHYSICAL HEALTH DETERIORATION [None]
  - TOXICITY TO VARIOUS AGENTS [None]
  - HEART RATE DECREASED [None]
  - ABDOMINAL DISTENSION [None]
